FAERS Safety Report 8553680-3 (Version None)
Quarter: 2012Q3

REPORT INFORMATION
  Report Type: 
  Country: None (occurrence: None)
  Receive Date: 20120731
  Receipt Date: 20120726
  Transmission Date: 20120928
  Serious: Yes (Other)
  Sender: FDA-Public Use
  Company Number: ES-009507513-1207ESP011107

PATIENT

DRUGS (5)
  1. SERTRALINE HYDROCHLORIDE [Interacting]
     Indication: DEPRESSION
     Route: 065
     Dates: start: 19990101
  2. SIMVASTATIN [Suspect]
     Indication: HYPERCHOLESTEROLAEMIA
     Route: 065
     Dates: start: 20110101
  3. LEVOTHROID [Interacting]
     Indication: HYPOTHYROIDISM
     Route: 065
     Dates: start: 20110101
  4. ARCOXIA 60 MG FILM-COATED TABLETS [Interacting]
     Route: 065
     Dates: start: 20120508
  5. ENALAPRIL MALEATE [Interacting]
     Indication: HYPERTENSION
     Route: 065
     Dates: start: 20070101

REACTIONS (1)
  - TRANSIENT GLOBAL AMNESIA [None]
